FAERS Safety Report 4477373-7 (Version None)
Quarter: 2004Q4

REPORT INFORMATION
  Report Type: 
  Country: None (occurrence: None)
  Receive Date: 20041013
  Receipt Date: 20040928
  Transmission Date: 20050328
  Serious: Yes (Hospitalization)
  Sender: FDA-Public Use
  Company Number: 2004SE05379

PATIENT
  Age: 81 Year
  Sex: Female

DRUGS (8)
  1. COKENZEN [Suspect]
     Indication: ESSENTIAL HYPERTENSION
     Dosage: 1 QD PO
     Route: 048
     Dates: end: 20040523
  2. PHYSIOTENS [Suspect]
     Indication: ESSENTIAL HYPERTENSION
     Dosage: 1 QD PO
     Route: 048
     Dates: end: 20040523
  3. HEMIGOXINE NATIVELLE [Suspect]
     Indication: ATRIAL FLUTTER
     Dosage: 0.125 MG QD PO
     Route: 048
     Dates: end: 20040523
  4. LAROXYL [Concomitant]
  5. CORTANCYL [Concomitant]
  6. NEULEPTIL [Concomitant]
  7. SKENAN [Concomitant]
  8. TRIFLUCAN [Concomitant]

REACTIONS (5)
  - ASTHENIA [None]
  - DEHYDRATION [None]
  - HYPERKALAEMIA [None]
  - HYPONATRAEMIA [None]
  - RENAL FAILURE ACUTE [None]
